FAERS Safety Report 9670202 (Version 1)
Quarter: 2013Q4

REPORT INFORMATION
  Report Type: Spontaneous
  Country: US (occurrence: None)
  Receive Date: 20131104
  Receipt Date: 20131104
  Transmission Date: 20140711
  Serious: Yes (Hospitalization)
  Sender: FDA-Public Use
  Company Number: US-00838

PATIENT
  Sex: Male

DRUGS (2)
  1. GATTEX [Suspect]
     Indication: SHORT-BOWEL SYNDROME
     Dosage: ONCE A DAY
     Route: 058
  2. SOLUTION FOR PARENTERAL NUTRITION () [Concomitant]

REACTIONS (1)
  - Intestinal obstruction [None]
